FAERS Safety Report 7207410-8 (Version None)
Quarter: 2011Q1

REPORT INFORMATION
  Report Type: 
  Country: None (occurrence: None)
  Receive Date: 20110103
  Receipt Date: 20101220
  Transmission Date: 20110831
  Serious: Yes (Hospitalization)
  Sender: FDA-Public Use
  Company Number: CA-GENENTECH-303079

PATIENT
  Sex: Male

DRUGS (4)
  1. ERTAPENEM [Concomitant]
     Indication: PRODUCT USED FOR UNKNOWN INDICATION
  2. VENTOLIN [Concomitant]
     Indication: PRODUCT USED FOR UNKNOWN INDICATION
  3. OMALIZUMAB [Suspect]
     Indication: ASTHMA
     Dosage: 225 MG, UNK
     Route: 058
     Dates: start: 20051005
  4. OMALIZUMAB [Suspect]
     Dosage: 300 MG, Q2W
     Route: 058
     Dates: start: 20060510

REACTIONS (7)
  - RHINOPLASTY [None]
  - POLYP [None]
  - FEELING COLD [None]
  - DYSPNOEA [None]
  - HYPERSENSITIVITY [None]
  - BRONCHITIS [None]
  - LUNG OPERATION [None]
